FAERS Safety Report 20742759 (Version 2)
Quarter: 2022Q2

REPORT INFORMATION
  Report Type: Spontaneous
  Country: GR (occurrence: GR)
  Receive Date: 20220424
  Receipt Date: 20220516
  Transmission Date: 20220721
  Serious: Yes (Hospitalization, Other)
  Sender: FDA-Public Use
  Company Number: GR-SA-SAC20220420000326

PATIENT
  Age: 6 Month

DRUGS (5)
  1. MYOZYME [Suspect]
     Active Substance: ALGLUCOSIDASE ALFA
     Indication: Glycogen storage disease type II
     Dosage: 20 MG/KG, QOW
     Route: 051
  2. MYOZYME [Suspect]
     Active Substance: ALGLUCOSIDASE ALFA
     Dosage: 30 MG/KG, QOW
     Route: 051
     Dates: end: 20220511
  3. MYOZYME [Suspect]
     Active Substance: ALGLUCOSIDASE ALFA
     Dosage: 40 MG/KG, QOW
     Route: 051
     Dates: start: 20220512
  4. INDERAL [Concomitant]
     Active Substance: PROPRANOLOL HYDROCHLORIDE
  5. NORMOLOSE [Concomitant]

REACTIONS (7)
  - COVID-19 [Unknown]
  - Anaphylactic reaction [Unknown]
  - Vomiting [Unknown]
  - Cyanosis [Unknown]
  - Hypotension [Unknown]
  - General physical health deterioration [Unknown]
  - Tryptase increased [Unknown]

NARRATIVE: CASE EVENT DATE: 20220301
